FAERS Safety Report 22104475 (Version 20)
Quarter: 2025Q3

REPORT INFORMATION
  Report Type: Report from Study
  Country: JP (occurrence: JP)
  Receive Date: 20230316
  Receipt Date: 20250930
  Transmission Date: 20251020
  Serious: Yes (Hospitalization)
  Sender: SANOFI AVENTIS
  Company Number: JP-SAKK-2023SA075610AA

PATIENT
  Age: 86 Year
  Sex: Male
  Weight: 52.5 kg

DRUGS (99)
  1. ISATUXIMAB [Suspect]
     Active Substance: ISATUXIMAB
     Indication: Plasma cell myeloma
     Dosage: 10 MG/KG, QOW
     Route: 041
     Dates: start: 20220916, end: 20221001
  2. ISATUXIMAB [Suspect]
     Active Substance: ISATUXIMAB
     Dosage: 10 MG/KG, QOW
     Route: 041
     Dates: start: 20220805, end: 20220806
  3. ISATUXIMAB [Suspect]
     Active Substance: ISATUXIMAB
     Dosage: 10 MG/KG, QW
     Route: 041
     Dates: start: 20210824, end: 20210824
  4. ISATUXIMAB [Suspect]
     Active Substance: ISATUXIMAB
     Dosage: 10 MG/KG, QOW
     Route: 041
     Dates: start: 20210913, end: 20211220
  5. ISATUXIMAB [Suspect]
     Active Substance: ISATUXIMAB
     Dosage: 10 MG/KG, QOW
     Route: 041
     Dates: start: 20220113, end: 20220124
  6. ISATUXIMAB [Suspect]
     Active Substance: ISATUXIMAB
     Dosage: 10 MG/KG, QOW
     Route: 041
     Dates: start: 20220214, end: 20220328
  7. ISATUXIMAB [Suspect]
     Active Substance: ISATUXIMAB
     Dosage: 10 MG/KG, QOW
     Route: 041
     Dates: start: 20220416, end: 20220430
  8. ISATUXIMAB [Suspect]
     Active Substance: ISATUXIMAB
     Dosage: 10 MG/KG, QOW
     Route: 041
     Dates: start: 20220610, end: 20220624
  9. ISATUXIMAB [Suspect]
     Active Substance: ISATUXIMAB
     Dosage: 10 MG/KG, QOW
     Route: 041
     Dates: start: 20220514, end: 20220527
  10. ISATUXIMAB [Suspect]
     Active Substance: ISATUXIMAB
     Dosage: 10 MG/KG, QOW
     Route: 041
     Dates: start: 20220709, end: 20220722
  11. ISATUXIMAB [Suspect]
     Active Substance: ISATUXIMAB
     Dosage: 10 MG/KG, QOW
     Route: 041
     Dates: start: 20221022, end: 20221106
  12. ISATUXIMAB [Suspect]
     Active Substance: ISATUXIMAB
     Dosage: 10 MG/KG, QOW
     Route: 041
     Dates: start: 20221119, end: 20221203
  13. ISATUXIMAB [Suspect]
     Active Substance: ISATUXIMAB
     Dosage: 10 MG/KG, QOW
     Route: 041
     Dates: start: 20221119, end: 20221203
  14. ISATUXIMAB [Suspect]
     Active Substance: ISATUXIMAB
     Dosage: 10 MG/KG, QOW
     Route: 041
     Dates: start: 20221217, end: 20230108
  15. ISATUXIMAB [Suspect]
     Active Substance: ISATUXIMAB
     Dosage: 10 MG/KG, QOW
     Route: 041
     Dates: start: 20230121, end: 20230205
  16. ISATUXIMAB [Suspect]
     Active Substance: ISATUXIMAB
     Dosage: 10 MG/KG, QOW
     Route: 041
     Dates: start: 20230225, end: 20230311
  17. ISATUXIMAB [Suspect]
     Active Substance: ISATUXIMAB
     Dosage: 10 MG/KG, QOW
     Route: 041
     Dates: start: 20220902, end: 20220915
  18. ISATUXIMAB [Suspect]
     Active Substance: ISATUXIMAB
     Dosage: 10 MG/KG, QOW
     Route: 041
     Dates: start: 20230422, end: 20230506
  19. ISATUXIMAB [Suspect]
     Active Substance: ISATUXIMAB
     Dosage: 10 MG/KG, QOW
     Route: 041
     Dates: start: 20230520, end: 20230603
  20. ISATUXIMAB [Suspect]
     Active Substance: ISATUXIMAB
     Dosage: 10 MG/KG, QOW
     Route: 041
     Dates: start: 20230617, end: 20230701
  21. ISATUXIMAB [Suspect]
     Active Substance: ISATUXIMAB
     Dosage: 10 MG/KG, QOW
     Route: 041
     Dates: start: 20230715, end: 20230729
  22. ISATUXIMAB [Suspect]
     Active Substance: ISATUXIMAB
     Dosage: 10 MG/KG, QOW
     Route: 041
     Dates: start: 20230812, end: 20230826
  23. ISATUXIMAB [Suspect]
     Active Substance: ISATUXIMAB
     Dosage: 10 MG/KG, QOW
     Route: 041
     Dates: start: 20230916, end: 20230930
  24. ISATUXIMAB [Suspect]
     Active Substance: ISATUXIMAB
     Dosage: 10 MG/KG, QOW
     Route: 041
     Dates: start: 20231013, end: 20231104
  25. ISATUXIMAB [Suspect]
     Active Substance: ISATUXIMAB
     Dosage: 10 MG/KG, QOW
     Route: 041
     Dates: start: 20231118, end: 20231202
  26. ISATUXIMAB [Suspect]
     Active Substance: ISATUXIMAB
     Dosage: 10 MG/KG, QOW
     Route: 041
     Dates: start: 20231118, end: 20231202
  27. ISATUXIMAB [Suspect]
     Active Substance: ISATUXIMAB
     Dosage: 10 MG/KG, QOW
     Route: 041
     Dates: start: 20231216, end: 20231229
  28. ISATUXIMAB [Suspect]
     Active Substance: ISATUXIMAB
     Dosage: 10 MG/KG, QOW
     Route: 041
     Dates: start: 20240113, end: 20240126
  29. ISATUXIMAB [Suspect]
     Active Substance: ISATUXIMAB
     Dosage: 10 MG/KG, QOW
     Route: 041
     Dates: start: 20240210, end: 20240301
  30. ISATUXIMAB [Suspect]
     Active Substance: ISATUXIMAB
     Dosage: 10 MG/KG, QOW
     Route: 041
     Dates: start: 20240315, end: 20240329
  31. ISATUXIMAB [Suspect]
     Active Substance: ISATUXIMAB
     Route: 065
     Dates: start: 20240615, end: 20240615
  32. POMALIDOMIDE [Suspect]
     Active Substance: POMALIDOMIDE
     Indication: Plasma cell myeloma
     Dosage: 1 MG, QD
     Route: 065
     Dates: start: 20220916, end: 20221006
  33. POMALIDOMIDE [Suspect]
     Active Substance: POMALIDOMIDE
     Dosage: 1 MG, QD
     Route: 065
     Dates: start: 20220805, end: 20220825
  34. POMALIDOMIDE [Suspect]
     Active Substance: POMALIDOMIDE
     Dosage: 1 MG, QD
     Route: 065
     Dates: start: 20210824, end: 20210824
  35. POMALIDOMIDE [Suspect]
     Active Substance: POMALIDOMIDE
     Dosage: 1 MG, QD
     Route: 065
     Dates: start: 20210913, end: 20211003
  36. POMALIDOMIDE [Suspect]
     Active Substance: POMALIDOMIDE
     Dosage: 1 MG, QD
     Route: 065
     Dates: start: 20211011, end: 20211031
  37. POMALIDOMIDE [Suspect]
     Active Substance: POMALIDOMIDE
     Dosage: 1 MG, QD
     Route: 065
     Dates: start: 20211108, end: 20211128
  38. POMALIDOMIDE [Suspect]
     Active Substance: POMALIDOMIDE
     Dosage: 1 MG, QD
     Route: 065
     Dates: start: 20211206, end: 20211226
  39. POMALIDOMIDE [Suspect]
     Active Substance: POMALIDOMIDE
     Dosage: 1 MG, QD
     Route: 065
     Dates: start: 20220113, end: 20220202
  40. POMALIDOMIDE [Suspect]
     Active Substance: POMALIDOMIDE
     Dosage: 1 MG, QD
     Route: 065
     Dates: start: 20220214, end: 20220306
  41. POMALIDOMIDE [Suspect]
     Active Substance: POMALIDOMIDE
     Dosage: 1 MG, QD
     Route: 065
     Dates: start: 20220314, end: 20220403
  42. POMALIDOMIDE [Suspect]
     Active Substance: POMALIDOMIDE
     Dosage: 1 MG, QD
     Route: 065
     Dates: start: 20220416, end: 20220429
  43. POMALIDOMIDE [Suspect]
     Active Substance: POMALIDOMIDE
     Dosage: 1 MG, QD
     Route: 065
     Dates: start: 20220514, end: 20220526
  44. POMALIDOMIDE [Suspect]
     Active Substance: POMALIDOMIDE
     Dosage: 1 MG, QD
     Route: 065
     Dates: start: 20220610, end: 20220623
  45. POMALIDOMIDE [Suspect]
     Active Substance: POMALIDOMIDE
     Dosage: 1 MG, QD
     Route: 065
     Dates: start: 20220709, end: 20220722
  46. POMALIDOMIDE [Suspect]
     Active Substance: POMALIDOMIDE
     Dosage: 1 MG, QD
     Route: 065
     Dates: start: 20221022, end: 20221112
  47. POMALIDOMIDE [Suspect]
     Active Substance: POMALIDOMIDE
     Dosage: 1 MG, QD
     Route: 065
     Dates: start: 20221119, end: 20221209
  48. POMALIDOMIDE [Suspect]
     Active Substance: POMALIDOMIDE
     Dosage: 1 MG, QD
     Route: 065
     Dates: start: 20221217, end: 20230104
  49. POMALIDOMIDE [Suspect]
     Active Substance: POMALIDOMIDE
     Dosage: 1 MG, QD
     Route: 065
     Dates: start: 20230121, end: 20230206
  50. POMALIDOMIDE [Suspect]
     Active Substance: POMALIDOMIDE
     Dosage: 1 MG, QD
     Route: 065
     Dates: start: 20230225, end: 20230318
  51. POMALIDOMIDE [Suspect]
     Active Substance: POMALIDOMIDE
     Dosage: 1 MG, QD
     Route: 065
     Dates: start: 20230422, end: 20230512
  52. POMALIDOMIDE [Suspect]
     Active Substance: POMALIDOMIDE
     Dosage: 1 MG, QD
     Route: 065
     Dates: start: 20230520, end: 20230609
  53. POMALIDOMIDE [Suspect]
     Active Substance: POMALIDOMIDE
     Dosage: 1 MG, QD
     Route: 065
     Dates: start: 20230617, end: 20230707
  54. POMALIDOMIDE [Suspect]
     Active Substance: POMALIDOMIDE
     Dosage: 1 MG, QD
     Route: 065
     Dates: start: 20230715, end: 20230804
  55. POMALIDOMIDE [Suspect]
     Active Substance: POMALIDOMIDE
     Dosage: 1 MG, QD
     Route: 065
     Dates: start: 20230812, end: 20230901
  56. POMALIDOMIDE [Suspect]
     Active Substance: POMALIDOMIDE
     Dosage: 1 MG, QD
     Route: 065
     Dates: start: 20230916, end: 20231006
  57. POMALIDOMIDE [Suspect]
     Active Substance: POMALIDOMIDE
     Dosage: 1 MG, QD
     Route: 065
     Dates: start: 20231013, end: 20231102
  58. POMALIDOMIDE [Suspect]
     Active Substance: POMALIDOMIDE
     Dosage: 1 MG, QD
     Route: 065
     Dates: start: 20231118, end: 20231209
  59. POMALIDOMIDE [Suspect]
     Active Substance: POMALIDOMIDE
     Dosage: 1 MG, QD
     Route: 065
     Dates: start: 20231216, end: 20240106
  60. POMALIDOMIDE [Suspect]
     Active Substance: POMALIDOMIDE
     Dosage: 1 MG, QD
     Route: 065
     Dates: start: 20240113, end: 20240203
  61. DEXAMETHASONE [Suspect]
     Active Substance: DEXAMETHASONE
     Indication: Plasma cell myeloma
     Dosage: 40 MG, QOW
     Route: 065
     Dates: start: 20220916, end: 20221001
  62. DEXAMETHASONE [Suspect]
     Active Substance: DEXAMETHASONE
     Dosage: 40 MG, QOW
     Route: 065
     Dates: start: 20220805, end: 20220806
  63. DEXAMETHASONE [Suspect]
     Active Substance: DEXAMETHASONE
     Dosage: 40 MG, QW
     Route: 065
     Dates: start: 20210824, end: 20210824
  64. DEXAMETHASONE [Suspect]
     Active Substance: DEXAMETHASONE
     Dosage: 40 MG, QW
     Route: 065
     Dates: start: 20210913, end: 20211220
  65. DEXAMETHASONE [Suspect]
     Active Substance: DEXAMETHASONE
     Dosage: 40 MG, QW
     Route: 065
     Dates: start: 20220113, end: 20220124
  66. DEXAMETHASONE [Suspect]
     Active Substance: DEXAMETHASONE
     Dosage: 40 MG, QW
     Route: 065
     Dates: start: 20220214, end: 20220328
  67. DEXAMETHASONE [Suspect]
     Active Substance: DEXAMETHASONE
     Dosage: 40 MG, QW
     Route: 065
     Dates: start: 20220416, end: 20220430
  68. DEXAMETHASONE [Suspect]
     Active Substance: DEXAMETHASONE
     Dosage: 40 MG, QOW
     Route: 065
     Dates: start: 20220514, end: 20220527
  69. DEXAMETHASONE [Suspect]
     Active Substance: DEXAMETHASONE
     Dosage: 40 MG, QOW
     Route: 065
     Dates: start: 20220610, end: 20220624
  70. DEXAMETHASONE [Suspect]
     Active Substance: DEXAMETHASONE
     Dosage: 40 MG, QOW
     Route: 065
     Dates: start: 20220709, end: 20220722
  71. DEXAMETHASONE [Suspect]
     Active Substance: DEXAMETHASONE
     Dosage: 40 MG, QOW
     Route: 065
     Dates: start: 20221022, end: 20221106
  72. DEXAMETHASONE [Suspect]
     Active Substance: DEXAMETHASONE
     Dosage: 40 MG, QOW
     Route: 065
     Dates: start: 20221119, end: 20221203
  73. DEXAMETHASONE [Suspect]
     Active Substance: DEXAMETHASONE
     Dosage: 40 MG, QOW
     Route: 065
     Dates: start: 20221217, end: 20230108
  74. DEXAMETHASONE [Suspect]
     Active Substance: DEXAMETHASONE
     Dosage: 40 MG, QOW
     Route: 065
     Dates: start: 20230121, end: 20230205
  75. DEXAMETHASONE [Suspect]
     Active Substance: DEXAMETHASONE
     Dosage: 40 MG, QOW
     Route: 065
     Dates: start: 20230225, end: 20230311
  76. DEXAMETHASONE [Suspect]
     Active Substance: DEXAMETHASONE
     Dosage: 40 MG, QOW
     Route: 065
     Dates: start: 20230422, end: 20230506
  77. DEXAMETHASONE [Suspect]
     Active Substance: DEXAMETHASONE
     Dosage: 40 MG, QOW
     Route: 065
     Dates: start: 20230520, end: 20230520
  78. DEXAMETHASONE [Suspect]
     Active Substance: DEXAMETHASONE
     Dosage: 40 MG, QOW
     Route: 065
     Dates: start: 20230617, end: 20230701
  79. DEXAMETHASONE [Suspect]
     Active Substance: DEXAMETHASONE
     Dosage: 40 MG, QOW
     Route: 065
     Dates: start: 20230715, end: 20230729
  80. DEXAMETHASONE [Suspect]
     Active Substance: DEXAMETHASONE
     Dosage: 40 MG, QOW
     Route: 065
     Dates: start: 20230812, end: 20230826
  81. DEXAMETHASONE [Suspect]
     Active Substance: DEXAMETHASONE
     Dosage: 40 MG, QOW
     Route: 065
     Dates: start: 20230916, end: 20230930
  82. DEXAMETHASONE [Suspect]
     Active Substance: DEXAMETHASONE
     Dosage: 40 MG, QOW
     Route: 065
     Dates: start: 20231013, end: 20231104
  83. DEXAMETHASONE [Suspect]
     Active Substance: DEXAMETHASONE
     Dosage: 40 MG, QOW
     Route: 065
     Dates: start: 20231118, end: 20231202
  84. DEXAMETHASONE [Suspect]
     Active Substance: DEXAMETHASONE
     Dosage: 40 MG, QOW
     Route: 065
     Dates: start: 20240113, end: 20240126
  85. DEXAMETHASONE [Suspect]
     Active Substance: DEXAMETHASONE
     Dosage: 40 MG, QOW
     Route: 065
     Dates: start: 20240210, end: 20240301
  86. DEXAMETHASONE [Suspect]
     Active Substance: DEXAMETHASONE
     Dosage: 40 MG, QOW
     Route: 065
     Dates: start: 20240315, end: 20240329
  87. CARFILZOMIB [Suspect]
     Active Substance: CARFILZOMIB
     Indication: Plasma cell myeloma
     Route: 065
  88. ACYCLOVIR [Concomitant]
     Active Substance: ACYCLOVIR
     Indication: Prophylaxis
     Route: 065
     Dates: start: 20190709
  89. LANSOPRAZOLE [Concomitant]
     Active Substance: LANSOPRAZOLE
     Indication: Prophylaxis against gastrointestinal ulcer
     Route: 048
     Dates: start: 20190627
  90. MIYA-BM [Concomitant]
     Active Substance: CLOSTRIDIUM BUTYRICUM SPORES STRAIN M-55
     Indication: Prophylaxis
     Route: 048
     Dates: start: 20210812, end: 20240215
  91. ASPIRIN [Concomitant]
     Active Substance: ASPIRIN
     Indication: Prophylaxis
     Route: 048
     Dates: start: 20190709, end: 20221001
  92. DARBEPOETIN ALFA [Concomitant]
     Active Substance: DARBEPOETIN ALFA
     Indication: Anaemia
     Route: 065
     Dates: start: 20210405, end: 20230520
  93. SULFAMETHOXAZOLE\TRIMETHOPRIM [Concomitant]
     Active Substance: SULFAMETHOXAZOLE\TRIMETHOPRIM
     Indication: Prophylaxis
     Route: 048
     Dates: start: 20210913
  94. AMLODIPINE BESYLATE [Concomitant]
     Active Substance: AMLODIPINE BESYLATE
     Indication: Blood pressure increased
     Route: 065
     Dates: start: 20211206, end: 20230113
  95. AMLODIPINE BESYLATE [Concomitant]
     Active Substance: AMLODIPINE BESYLATE
     Route: 065
     Dates: start: 20240921
  96. OLMESARTAN MEDOXOMIL [Concomitant]
     Active Substance: OLMESARTAN MEDOXOMIL
     Indication: Blood pressure increased
     Route: 065
     Dates: start: 20220113, end: 20230106
  97. SODIUM FERROUS CITRATE [Concomitant]
     Active Substance: SODIUM FERROUS CITRATE
     Indication: Anaemia
     Route: 065
     Dates: start: 20220527, end: 20220804
  98. SODIUM FERROUS CITRATE [Concomitant]
     Active Substance: SODIUM FERROUS CITRATE
     Route: 065
     Dates: start: 20240629, end: 20241116
  99. FERRIC DERISOMALTOSE [Concomitant]
     Active Substance: FERRIC DERISOMALTOSE
     Indication: Anaemia
     Route: 065
     Dates: start: 20241116, end: 20250712

REACTIONS (10)
  - Gastric cancer [Recovered/Resolved]
  - Bacteraemia [Recovered/Resolved]
  - Decreased appetite [Recovered/Resolved]
  - Escherichia bacteraemia [Recovered/Resolved]
  - Hepatic cyst infection [Recovered/Resolved]
  - Anaemia [Recovered/Resolved]
  - Prostate infection [Recovered/Resolved]
  - Spinal fracture [Recovered/Resolved]
  - Deep vein thrombosis [Not Recovered/Not Resolved]
  - Back pain [Recovering/Resolving]

NARRATIVE: CASE EVENT DATE: 20220807
